FAERS Safety Report 23185872 (Version 1)
Quarter: 2023Q4

REPORT INFORMATION
  Report Type: Spontaneous
  Country: US (occurrence: US)
  Receive Date: 20231115
  Receipt Date: 20231115
  Transmission Date: 20240109
  Serious: No
  Sender: FDA-Public Use
  Company Number: US-OTSUKA-2023_005725

PATIENT
  Age: 65 Year
  Sex: Male
  Weight: 95.25 kg

DRUGS (2)
  1. NUEDEXTA [Suspect]
     Active Substance: DEXTROMETHORPHAN HYDROBROMIDE\QUINIDINE SULFATE
     Indication: Mood swings
     Dosage: UNK ,^2 SOMETHING, UNSURE^
     Route: 065
     Dates: end: 20230301
  2. NUEDEXTA [Suspect]
     Active Substance: DEXTROMETHORPHAN HYDROBROMIDE\QUINIDINE SULFATE
     Indication: Panic reaction
     Dosage: 1 DF (20/10MG) (RED CAPSULE), BID
     Route: 065

REACTIONS (3)
  - Memory impairment [Unknown]
  - Therapy interrupted [Unknown]
  - Product use in unapproved indication [Unknown]

NARRATIVE: CASE EVENT DATE: 20230301
